FAERS Safety Report 15325483 (Version 1)
Quarter: 2018Q3

REPORT INFORMATION
  Report Type: Spontaneous
  Country: US (occurrence: US)
  Receive Date: 20180822
  Receipt Date: 20180822
  Transmission Date: 20181010
  Serious: No
  Sender: FDA-Public Use
  Company Number: None

PATIENT
  Age: 39 Year
  Sex: Female
  Weight: 58.5 kg

DRUGS (8)
  1. DULOXOTINE [Concomitant]
  2. CALCIUM [Concomitant]
     Active Substance: CALCIUM
  3. IC METHYLPHENIDATE ER [Suspect]
     Active Substance: METHYLPHENIDATE
     Indication: ATTENTION DEFICIT/HYPERACTIVITY DISORDER
     Dosage: ?          QUANTITY:1 DF DOSAGE FORM;?
     Route: 048
     Dates: start: 20180819, end: 20180822
  4. BIOTIN [Concomitant]
     Active Substance: BIOTIN
  5. QUETIAPINE ER [Concomitant]
     Active Substance: QUETIAPINE
  6. CLONIDINE. [Concomitant]
     Active Substance: CLONIDINE
  7. VITAMIN E [Concomitant]
     Active Substance: .ALPHA.-TOCOPHEROL
  8. VITAMIN C [Concomitant]
     Active Substance: ASCORBIC ACID

REACTIONS (8)
  - Somnolence [None]
  - Product substitution issue [None]
  - Tremor [None]
  - Muscular weakness [None]
  - Drug ineffective [None]
  - Recalled product [None]
  - Nausea [None]
  - Headache [None]

NARRATIVE: CASE EVENT DATE: 20180819
